FAERS Safety Report 7383179-1 (Version None)
Quarter: 2011Q1

REPORT INFORMATION
  Report Type: 
  Country: None (occurrence: None)
  Receive Date: 20110330
  Receipt Date: 20110322
  Transmission Date: 20110831
  Serious: Yes (Hospitalization, Other)
  Sender: FDA-Public Use
  Company Number: CN-NOVOPROD-325412

PATIENT
  Age: 60 Year
  Sex: Female

DRUGS (1)
  1. NOVOLOG MIX 70/30 [Suspect]
     Indication: TYPE 2 DIABETES MELLITUS
     Dosage: 12U IN THE MORNING AND 12U AT NIGHT
     Route: 058

REACTIONS (5)
  - FALL [None]
  - LOWER LIMB FRACTURE [None]
  - DIZZINESS [None]
  - HYPOGLYCAEMIA [None]
  - PRODUCT QUALITY ISSUE [None]
